FAERS Safety Report 8131229-7 (Version None)
Quarter: 2012Q1

REPORT INFORMATION
  Report Type: 
  Country: None (occurrence: None)
  Receive Date: 20120210
  Receipt Date: 20120210
  Transmission Date: 20120608
  Serious: Yes (Other)
  Sender: FDA-Public Use
  Company Number: None

PATIENT
  Sex: Male

DRUGS (2)
  1. TARCEVA [Suspect]
     Dosage: 150MG QD PO
     Route: 048
     Dates: start: 20120127
  2. TARCEVA [Suspect]
     Dosage: 150MG QD PO
     Route: 048
     Dates: start: 20120201

REACTIONS (3)
  - RASH [None]
  - HEPATIC LESION [None]
  - HERPES ZOSTER [None]
